FAERS Safety Report 20607168 (Version 11)
Quarter: 2022Q3

REPORT INFORMATION
  Report Type: Report from Study
  Country: US (occurrence: US)
  Receive Date: 20220317
  Receipt Date: 20220805
  Transmission Date: 20221027
  Serious: Yes (Other)
  Sender: FDA-Public Use
  Company Number: US-NOVARTISTESTPH-NVSC2022US061805

PATIENT
  Age: 62 Year
  Sex: Male

DRUGS (2)
  1. ENTRESTO [Suspect]
     Active Substance: SACUBITRIL\VALSARTAN
     Indication: Salivary gland cancer
     Dosage: 100 MG, BID, (49/51 MG)
     Route: 048
     Dates: start: 20220301
  2. ENTRESTO [Suspect]
     Active Substance: SACUBITRIL\VALSARTAN
     Dosage: 200 MG, (97/103 MG)
     Route: 048
     Dates: start: 20220427

REACTIONS (14)
  - Nephrolithiasis [Unknown]
  - Urinary retention [Unknown]
  - Cystitis [Unknown]
  - Illness [Unknown]
  - Fluid retention [Unknown]
  - Weight increased [Unknown]
  - Back pain [Unknown]
  - Arthralgia [Unknown]
  - Pain in extremity [Unknown]
  - Urinary tract infection [Unknown]
  - Calculus bladder [Unknown]
  - Dysuria [Unknown]
  - Pollakiuria [Unknown]
  - Product use in unapproved indication [Unknown]

NARRATIVE: CASE EVENT DATE: 20220502
